FAERS Safety Report 4511975-4 (Version None)
Quarter: 2004Q4

REPORT INFORMATION
  Report Type: 
  Country: None (occurrence: None)
  Receive Date: 20041129
  Receipt Date: 20031117
  Transmission Date: 20050328
  Serious: No
  Sender: FDA-Public Use
  Company Number: US-BRISTOL-MYERS SQUIBB COMPANY-12437422

PATIENT
  Age: 59 Year
  Sex: Male
  Weight: 73 kg

DRUGS (2)
  1. SUSTIVA [Suspect]
     Indication: HIV TEST POSITIVE
     Route: 048
  2. COMBIVIR [Concomitant]

REACTIONS (1)
  - GLOSSODYNIA [None]
